FAERS Safety Report 7775727-4 (Version None)
Quarter: 2011Q3

REPORT INFORMATION
  Report Type: 
  Country: None (occurrence: None)
  Receive Date: 20110923
  Receipt Date: 20110914
  Transmission Date: 20111222
  Serious: Yes (Hospitalization, Disabling)
  Sender: FDA-Public Use
  Company Number: BR-GLAXOSMITHKLINE-B0748966A

PATIENT
  Sex: Female

DRUGS (3)
  1. PROPAFENONE HCL [Suspect]
     Indication: ARRHYTHMIA
     Dosage: 1.5TAB PER DAY
     Route: 048
     Dates: start: 20110701
  2. AZATHIOPRINE SODIUM [Concomitant]
     Indication: AUTOIMMUNE HEPATITIS
     Dosage: 50MG PER DAY
     Route: 048
  3. URSODIOL [Concomitant]
     Indication: BILIARY CIRRHOSIS PRIMARY
     Route: 048

REACTIONS (3)
  - SOMNOLENCE [None]
  - DIZZINESS [None]
  - ARRHYTHMIA [None]
